FAERS Safety Report 9573809 (Version 1)
Quarter: 2013Q4

REPORT INFORMATION
  Report Type: Spontaneous
  Country: US (occurrence: US)
  Receive Date: 20131001
  Receipt Date: 20131001
  Transmission Date: 20140711
  Serious: Yes (Life-Threatening, Hospitalization, Other)
  Sender: FDA-Public Use
  Company Number: US-ELI_LILLY_AND_COMPANY-US201309006831

PATIENT
  Age: 61 Year
  Sex: Male

DRUGS (2)
  1. HUMALOG LISPRO [Suspect]
  2. LEVEMIR [Concomitant]
     Indication: DIABETES MELLITUS

REACTIONS (3)
  - Respiratory distress [Unknown]
  - Hypersensitivity [Unknown]
  - Neoplasm malignant [Unknown]
